FAERS Safety Report 13128443 (Version 1)
Quarter: 2017Q1

REPORT INFORMATION
  Report Type: Spontaneous
  Country: IT (occurrence: IT)
  Receive Date: 20170118
  Receipt Date: 20170118
  Transmission Date: 20170428
  Serious: Yes (Hospitalization)
  Sender: FDA-Public Use
  Company Number: IT-ABBVIE-17P-083-1845198-00

PATIENT
  Age: 22 Year
  Sex: Male

DRUGS (3)
  1. DEPAKINE [Suspect]
     Active Substance: VALPROATE SODIUM
     Indication: PRODUCT USED FOR UNKNOWN INDICATION
     Route: 048
     Dates: end: 20161003
  2. ABILIFY [Suspect]
     Active Substance: ARIPIPRAZOLE
     Indication: SUPPLEMENTATION THERAPY
     Route: 048
     Dates: end: 20161002
  3. ABILIFY [Suspect]
     Active Substance: ARIPIPRAZOLE
     Dosage: SOLUTION
     Route: 030
     Dates: start: 20160930

REACTIONS (3)
  - Sedation [Recovered/Resolved]
  - Confusional state [Recovered/Resolved]
  - Abnormal behaviour [Recovered/Resolved]

NARRATIVE: CASE EVENT DATE: 20160930
